FAERS Safety Report 5412275-0 (Version None)
Quarter: 2007Q3

REPORT INFORMATION
  Report Type: 
  Country: None (occurrence: None)
  Receive Date: 20070810
  Receipt Date: 20070810
  Transmission Date: 20080115
  Serious: Yes (Hospitalization)
  Sender: FDA-Public Use
  Company Number: None

PATIENT
  Age: 61 Year
  Sex: Female

DRUGS (9)
  1. INTEGRILIN [Suspect]
     Indication: MYOCARDIAL INFARCTION
     Dosage: 9 MG/HR 18 HRS IV
     Route: 042
     Dates: start: 20060716, end: 20060717
  2. HEPARIN [Suspect]
     Indication: MYOCARDIAL INFARCTION
     Dates: start: 20060716, end: 20060717
  3. ASPIRIN [Concomitant]
  4. PLAVIX [Concomitant]
  5. ZANTAC 150 [Concomitant]
  6. QUINAPRIL HCL [Concomitant]
  7. COREG [Concomitant]
  8. ATORVASTATIN CALCIUM [Concomitant]
  9. HEPARIN [Concomitant]

REACTIONS (1)
  - HAEMOPTYSIS [None]
